FAERS Safety Report 23472556 (Version 1)
Quarter: 2024Q1

REPORT INFORMATION
  Report Type: Spontaneous
  Country: US (occurrence: US)
  Receive Date: 20240202
  Receipt Date: 20240202
  Transmission Date: 20240410
  Serious: No
  Sender: FDA-Public Use
  Company Number: US-PURDUE-USA-2024-0307651

PATIENT
  Sex: Female
  Weight: 98.88 kg

DRUGS (1)
  1. BUTRANS [Suspect]
     Active Substance: BUPRENORPHINE
     Indication: Pain management
     Dosage: 5 MCG/HR, WEEKLY
     Route: 062
     Dates: start: 20240112

REACTIONS (5)
  - Application site erythema [Recovering/Resolving]
  - Application site pruritus [Recovering/Resolving]
  - Rash macular [Recovered/Resolved]
  - Drug withdrawal syndrome [Unknown]
  - Product adhesion issue [Unknown]
